FAERS Safety Report 7915814-0 (Version None)
Quarter: 2011Q4

REPORT INFORMATION
  Report Type: 
  Country: None (occurrence: None)
  Receive Date: 20111115
  Receipt Date: 20111108
  Transmission Date: 20120403
  Serious: Yes (Other)
  Sender: FDA-Public Use
  Company Number: CHPA2011CA015817

PATIENT
  Sex: Female

DRUGS (1)
  1. TRANSDERM VOYAGER [Suspect]
     Dosage: UNK , UNK
     Route: 062
     Dates: start: 20110901

REACTIONS (5)
  - NAUSEA [None]
  - AMNESIA [None]
  - HYPERHIDROSIS [None]
  - DYSPEPSIA [None]
  - DIZZINESS [None]
